FAERS Safety Report 8310237-7 (Version None)
Quarter: 2012Q2

REPORT INFORMATION
  Report Type: 
  Country: None (occurrence: None)
  Receive Date: 20120425
  Receipt Date: 20120414
  Transmission Date: 20120825
  Serious: Yes (Hospitalization)
  Sender: FDA-Public Use
  Company Number: PL-BRISTOL-MYERS SQUIBB COMPANY-16526675

PATIENT
  Age: 54 Year
  Sex: Male

DRUGS (1)
  1. IPILIMUMAB [Suspect]
     Indication: MALIGNANT MELANOMA
     Dosage: 2ND DOSE:16AUG11,265MG 3RD DOSE:08SEP11,270MG
     Route: 042
     Dates: start: 20110722

REACTIONS (9)
  - NAUSEA [None]
  - PYREXIA [None]
  - ALOPECIA [None]
  - VITILIGO [None]
  - VOMITING [None]
  - HYPOPHYSITIS [None]
  - HYPERTHYROIDISM [None]
  - ABDOMINAL PAIN [None]
  - GENERAL PHYSICAL HEALTH DETERIORATION [None]
